FAERS Safety Report 4339908-4 (Version None)
Quarter: 2004Q2

REPORT INFORMATION
  Report Type: 
  Country: None (occurrence: None)
  Receive Date: 20040412
  Receipt Date: 20040330
  Transmission Date: 20050107
  Serious: Yes (Other)
  Sender: FDA-Public Use
  Company Number: 2003-09-0612

PATIENT
  Age: 27 Year
  Sex: Female

DRUGS (3)
  1. CLARITIN [Suspect]
     Indication: PRURITUS
     Dosage: 10 MG QD ORAL
     Route: 048
     Dates: start: 20030726, end: 20030731
  2. RINDERON-VG OINTMENT [Suspect]
     Indication: ECZEMA
     Dosage: 0.7G/DAY
     Dates: start: 20030726, end: 20030731
  3. TACROLIMUS OINTMENT [Suspect]
     Indication: ECZEMA
     Dosage: 0.5G/DAY
     Dates: start: 20030806, end: 20030819

REACTIONS (5)
  - ABORTION SPONTANEOUS [None]
  - COMPLICATIONS OF MATERNAL EXPOSURE TO THERAPEUTIC DRUGS [None]
  - MATERNAL DRUGS AFFECTING FOETUS [None]
  - PREGNANCY [None]
  - RASH [None]
